FAERS Safety Report 4562842-1 (Version None)
Quarter: 2005Q1

REPORT INFORMATION
  Report Type: 
  Country: None (occurrence: None)
  Receive Date: 20050127
  Receipt Date: 20050117
  Transmission Date: 20050727
  Serious: Yes (Disabling)
  Sender: FDA-Public Use
  Company Number: HQWYE669118JAN05

PATIENT
  Sex: Male

DRUGS (5)
  1. ENBREL [Suspect]
     Indication: RHEUMATOID ARTHRITIS
     Route: 058
     Dates: start: 20040908
  2. METHOTREXATE [Concomitant]
  3. METHYLPREDNISOLONE [Concomitant]
  4. FOLIC ACID [Concomitant]
  5. CALCIUM GLUCONATE [Concomitant]

REACTIONS (4)
  - CATARACT [None]
  - CONDITION AGGRAVATED [None]
  - GLAUCOMA [None]
  - VISUAL ACUITY REDUCED [None]
